FAERS Safety Report 9260705 (Version 1)
Quarter: 2013Q2

REPORT INFORMATION
  Report Type: Spontaneous
  Country: US (occurrence: US)
  Receive Date: 20130429
  Receipt Date: 20130429
  Transmission Date: 20140414
  Serious: No
  Sender: FDA-Public Use
  Company Number: US-BAYER-2013-053203

PATIENT
  Age: 53 Year
  Sex: Male
  Weight: 83.9 kg

DRUGS (1)
  1. ALEVE CAPLET [Suspect]
     Indication: MUSCLE STRAIN
     Dosage: 2 DF, PRN
     Route: 048

REACTIONS (1)
  - Incorrect dose administered [None]
